FAERS Safety Report 25158998 (Version 1)
Quarter: 2025Q2

REPORT INFORMATION
  Report Type: Spontaneous
  Country: RU (occurrence: RU)
  Receive Date: 20250404
  Receipt Date: 20250404
  Transmission Date: 20250717
  Serious: Yes (Hospitalization)
  Sender: ROCHE
  Company Number: RU-ROCHE-10000246296

PATIENT
  Age: 83 Year
  Sex: Female

DRUGS (2)
  1. ENTRECTINIB [Suspect]
     Active Substance: ENTRECTINIB
     Indication: Product used for unknown indication
     Route: 065
  2. LAROTRECTINIB [Concomitant]
     Active Substance: LAROTRECTINIB

REACTIONS (2)
  - Cognitive disorder [Unknown]
  - Acute kidney injury [Unknown]
